FAERS Safety Report 8462512-3 (Version None)
Quarter: 2012Q2

REPORT INFORMATION
  Report Type: 
  Country: None (occurrence: None)
  Receive Date: 20120625
  Receipt Date: 20120620
  Transmission Date: 20120825
  Serious: Yes (Hospitalization, Other)
  Sender: FDA-Public Use
  Company Number: US-BAYER-2012-000771

PATIENT
  Age: 61 Year
  Sex: Female

DRUGS (2)
  1. NEXAVAR [Suspect]
     Indication: RENAL CELL CARCINOMA
     Dosage: 400 MG, BID
     Route: 048
     Dates: start: 20111226
  2. KAYEXALATE [Concomitant]

REACTIONS (19)
  - LYMPH NODE PAIN [None]
  - OROPHARYNGEAL PAIN [None]
  - DYSPHAGIA [None]
  - CEREBROVASCULAR ACCIDENT [None]
  - VOMITING [None]
  - BUCCAL MUCOSAL ROUGHENING [None]
  - LYMPHADENOPATHY [None]
  - RASH [None]
  - CONVULSION [None]
  - BLOOD POTASSIUM INCREASED [None]
  - STOMATITIS [None]
  - PAIN IN EXTREMITY [None]
  - CENTRAL NERVOUS SYSTEM LESION [None]
  - NAUSEA [None]
  - ERYTHEMA [None]
  - GLOSSODYNIA [None]
  - PAIN OF SKIN [None]
  - ORAL PAIN [None]
  - PRURITUS [None]
